FAERS Safety Report 13285488 (Version 1)
Quarter: 2017Q1

REPORT INFORMATION
  Report Type: Spontaneous
  Country: US (occurrence: US)
  Receive Date: 20170301
  Receipt Date: 20170301
  Transmission Date: 20170428
  Serious: Yes (Death)
  Sender: FDA-Public Use
  Company Number: US-LANNETT COMPANY, INC.-US-2017LAN000597

PATIENT
  Age: 86 Day
  Sex: Male

DRUGS (4)
  1. ONDANSETRON [Suspect]
     Active Substance: ONDANSETRON
     Indication: GASTROENTERITIS
     Dosage: 0.5 MG, SINGLE
     Route: 048
  2. PEDIALYTE                          /02069401/ [Concomitant]
     Indication: HYPOPHAGIA
  3. PEDIALYTE                          /02069401/ [Concomitant]
     Indication: VOMITING
     Dosage: UNK
     Route: 048
  4. PEDIALYTE                          /02069401/ [Concomitant]
     Indication: URINE OUTPUT DECREASED

REACTIONS (10)
  - Arrhythmia [Fatal]
  - Skin discolouration [Fatal]
  - Hyporesponsive to stimuli [Fatal]
  - Heart rate increased [Fatal]
  - Respiratory distress [Fatal]
  - Ventricular fibrillation [Fatal]
  - Blood pressure decreased [Fatal]
  - Supraventricular tachycardia [Fatal]
  - Viral infection [Fatal]
  - Vomiting [Unknown]
